FAERS Safety Report 4360200-6 (Version None)
Quarter: 2004Q2

REPORT INFORMATION
  Report Type: 
  Country: None (occurrence: None)
  Receive Date: 20040518
  Receipt Date: 20040518
  Transmission Date: 20050107
  Serious: Yes (Hospitalization)
  Sender: FDA-Public Use
  Company Number: None

PATIENT
  Sex: Female
  Weight: 54.4316 kg

DRUGS (16)
  1. PROCRIT 40000U/ML ORTHO BIOTECH [Suspect]
     Indication: ANAEMIA
  2. PROCRIT 40000U/ML ORTHO BIOTECH [Suspect]
     Indication: CHEMOTHERAPY
  3. CHEMOTHERAPY [Concomitant]
  4. ACTINOMYCIN [Concomitant]
  5. METHOTREXATE [Concomitant]
  6. ETOPOSIDE [Concomitant]
  7. CISPLATIN [Concomitant]
  8. LEUCOVORIN CALCIUM [Concomitant]
  9. FOSAMAX [Concomitant]
  10. OSCAL [Concomitant]
  11. ESTROGEN PATCH [Concomitant]
  12. ATENOLOL [Concomitant]
  13. MGS04 [Concomitant]
  14. KCL TAB [Concomitant]
  15. AMBIEN [Concomitant]
  16. NEUPOGEN [Concomitant]

REACTIONS (1)
  - DEEP VEIN THROMBOSIS [None]
